FAERS Safety Report 8322696-4 (Version None)
Quarter: 2012Q2

REPORT INFORMATION
  Report Type: 
  Country: None (occurrence: None)
  Receive Date: 20120430
  Receipt Date: 20120423
  Transmission Date: 20120825
  Serious: Yes (Other)
  Sender: FDA-Public Use
  Company Number: US-ROXANE LABORATORIES, INC.-2012-RO-01105RO

PATIENT
  Age: 35 Year
  Sex: Male

DRUGS (5)
  1. HALOPERIDOL [Suspect]
     Indication: SCHIZOPHRENIA
  2. BENZTROPINE MESYLATE [Concomitant]
     Indication: DYSTONIA
     Dosage: 4 MG
  3. QUETIAPINE FUMARATE [Suspect]
     Indication: SCHIZOPHRENIA
  4. ALPRAZOLAM [Suspect]
     Indication: SCHIZOPHRENIA
     Dosage: 1 MG
  5. RISPERIDONE [Suspect]
     Indication: SCHIZOPHRENIA
     Dosage: 4 MG

REACTIONS (3)
  - TARDIVE DYSKINESIA [None]
  - DYSPNOEA [None]
  - GAIT DISTURBANCE [None]
